FAERS Safety Report 15599257 (Version 2)
Quarter: 2018Q4

REPORT INFORMATION
  Report Type: Report from Study
  Country: US (occurrence: US)
  Receive Date: 20181108
  Receipt Date: 20181225
  Transmission Date: 20190205
  Serious: No
  Sender: FDA-Public Use
  Company Number: PHEH2018US046591

PATIENT
  Sex: Male

DRUGS (2)
  1. AFINITOR [Suspect]
     Active Substance: EVEROLIMUS
     Indication: ACUTE MYELOID LEUKAEMIA
     Dosage: 5 MG, QD
     Route: 048
     Dates: start: 20180917
  2. AFINITOR [Suspect]
     Active Substance: EVEROLIMUS
     Dosage: 10 MG (2 TIMES WEEKLY)
     Route: 048
     Dates: start: 20181217

REACTIONS (8)
  - Folliculitis [Not Recovered/Not Resolved]
  - Gingival discolouration [Recovering/Resolving]
  - Oral pustule [Recovering/Resolving]
  - Loose tooth [Recovering/Resolving]
  - Inappropriate schedule of product administration [Unknown]
  - Stomatitis [Recovering/Resolving]
  - Gingival swelling [Recovering/Resolving]
  - Oral pain [Recovering/Resolving]
